FAERS Safety Report 6168153-5 (Version None)
Quarter: 2009Q2

REPORT INFORMATION
  Report Type: 
  Country: None (occurrence: None)
  Receive Date: 20090427
  Receipt Date: 20090417
  Transmission Date: 20091009
  Serious: Yes (Hospitalization)
  Sender: FDA-Public Use
  Company Number: JP-ASTRAZENECA-2009SE01143

PATIENT
  Age: 28443 Day
  Sex: Female
  Weight: 63 kg

DRUGS (9)
  1. BLOPRESS [Suspect]
     Indication: HYPERTENSION
     Route: 048
     Dates: start: 20090219, end: 20090306
  2. LIPITOR [Concomitant]
     Indication: HYPERTENSION
     Route: 048
     Dates: start: 20080725, end: 20090306
  3. CALBLOCK [Concomitant]
     Indication: HYPERTENSION
     Route: 048
     Dates: start: 20080930, end: 20090306
  4. NATRIX [Concomitant]
     Indication: HYPERTENSION
     Route: 048
     Dates: start: 20081219, end: 20090306
  5. BENZALIN [Concomitant]
     Indication: INSOMNIA
     Route: 048
     Dates: start: 20090107, end: 20090306
  6. SELBEX [Concomitant]
     Indication: GASTRITIS
     Route: 048
     Dates: start: 20080725, end: 20090306
  7. TAIPROTON [Concomitant]
     Indication: REFLUX OESOPHAGITIS
     Route: 048
     Dates: start: 20081210, end: 20090306
  8. DEPAS [Concomitant]
     Indication: ANXIETY DISORDER
     Route: 048
     Dates: start: 20080808, end: 20090306
  9. MIROPIN [Concomitant]
     Indication: DIARRHOEA
     Route: 048
     Dates: start: 20080725, end: 20090306

REACTIONS (1)
  - LOSS OF CONSCIOUSNESS [None]
